FAERS Safety Report 8994946 (Version 1)
Quarter: 2013Q1

REPORT INFORMATION
  Report Type: Spontaneous
  Country: US (occurrence: US)
  Receive Date: 20130102
  Receipt Date: 20130102
  Transmission Date: 20140127
  Serious: No
  Sender: FDA-Public Use
  Company Number: US-AMGEN-USASP2012077936

PATIENT
  Sex: Female

DRUGS (1)
  1. ENBREL [Suspect]
     Indication: RHEUMATOID ARTHRITIS
     Dosage: 50 MG, QWK
     Dates: start: 20090817, end: 201210

REACTIONS (12)
  - Malaise [Not Recovered/Not Resolved]
  - Nasal congestion [Unknown]
  - Device breakage [Unknown]
  - Migraine [Unknown]
  - Oesophageal pain [Unknown]
  - Vomiting [Unknown]
  - Salivary duct obstruction [Not Recovered/Not Resolved]
  - Endodontic procedure [Unknown]
  - Visual acuity reduced [Not Recovered/Not Resolved]
  - Inflammation [Not Recovered/Not Resolved]
  - Tooth abscess [Unknown]
  - Sinusitis [Unknown]
